FAERS Safety Report 8489037-3 (Version None)
Quarter: 2012Q3

REPORT INFORMATION
  Report Type: 
  Country: None (occurrence: None)
  Receive Date: 20120705
  Receipt Date: 20120703
  Transmission Date: 20120928
  Serious: Yes (Other)
  Sender: FDA-Public Use
  Company Number: US-PFIZER INC-2012052289

PATIENT
  Sex: Female
  Weight: 64.4 kg

DRUGS (2)
  1. ZOLOFT [Concomitant]
     Indication: DEPRESSION
     Dosage: 15 MG, DAILY
     Dates: start: 20110101
  2. DILANTIN [Suspect]
     Indication: CONVULSION
     Dosage: 100 MG, 3X/DAY
     Route: 048
     Dates: start: 20101015

REACTIONS (5)
  - HYPERTENSION [None]
  - DIABETES MELLITUS [None]
  - NAUSEA [None]
  - BRAIN NEOPLASM [None]
  - HEADACHE [None]
